FAERS Safety Report 21526195 (Version 7)
Quarter: 2024Q1

REPORT INFORMATION
  Report Type: Report from Study
  Country: US (occurrence: US)
  Receive Date: 20221031
  Receipt Date: 20240105
  Transmission Date: 20240410
  Serious: Yes (Other)
  Sender: FDA-Public Use
  Company Number: US-002147023-NVSC2022US240919

PATIENT
  Sex: Female

DRUGS (2)
  1. ENTRESTO [Suspect]
     Active Substance: SACUBITRIL\VALSARTAN
     Indication: Product used for unknown indication
     Dosage: 1 DOSAGE FORM, BID (24/26 MG)
     Route: 065
  2. ENTRESTO [Suspect]
     Active Substance: SACUBITRIL\VALSARTAN
     Dosage: 1 DOSAGE FORM, BID (24/26 MG)
     Route: 065

REACTIONS (9)
  - Cardiac failure chronic [Unknown]
  - Dyspnoea [Unknown]
  - Myocardial infarction [Unknown]
  - Swelling [Recovered/Resolved]
  - Urine abnormality [Unknown]
  - Weight increased [Recovering/Resolving]
  - Photopsia [Unknown]
  - COVID-19 [Recovering/Resolving]
  - Lethargy [Unknown]
